FAERS Safety Report 12920091 (Version 1)
Quarter: 2016Q4

REPORT INFORMATION
  Report Type: Spontaneous
  Country: BR (occurrence: BR)
  Receive Date: 20161108
  Receipt Date: 20161108
  Transmission Date: 20170207
  Serious: Yes (Other)
  Sender: FDA-Public Use
  Company Number: PHHY2016BR147038

PATIENT
  Age: 48 Year
  Sex: Male

DRUGS (9)
  1. MIRTAZAPINE SANDOZ [Suspect]
     Active Substance: MIRTAZAPINE
     Indication: DEPRESSION
     Dosage: 30 MG, QD
     Route: 048
     Dates: end: 201607
  2. FLUOXETINE [Concomitant]
     Active Substance: FLUOXETINE HYDROCHLORIDE
     Indication: DEPRESSION
     Dosage: 20 MG, QD, I TABLET
     Route: 048
  3. QUETROS [Concomitant]
     Active Substance: QUETIAPINE
     Indication: SLEEP DISORDER
  4. MIRTAZAPINE SANDOZ [Suspect]
     Active Substance: MIRTAZAPINE
     Indication: PANIC ATTACK
  5. QUETROS [Concomitant]
     Active Substance: QUETIAPINE
     Indication: ANXIETY
     Dosage: 25 MG, QD, I TABLET
     Route: 048
  6. ORAP [Concomitant]
     Active Substance: PIMOZIDE
     Indication: ANXIETY
     Dosage: 4 MG, QD, I TABLET
     Route: 048
  7. MIRTAZAPINE SANDOZ [Suspect]
     Active Substance: MIRTAZAPINE
     Indication: BIPOLAR DISORDER
  8. AEROLIN [Concomitant]
     Active Substance: ALBUTEROL
     Indication: ASTHMA
     Dosage: 2 JETS DAILY
     Route: 065
  9. ORAP [Concomitant]
     Active Substance: PIMOZIDE
     Indication: DEPRESSION

REACTIONS (8)
  - Insomnia [Not Recovered/Not Resolved]
  - Osteoarthritis [Not Recovered/Not Resolved]
  - Arthritis [Not Recovered/Not Resolved]
  - Muscle spasms [Not Recovered/Not Resolved]
  - Tremor [Not Recovered/Not Resolved]
  - Seizure [Recovering/Resolving]
  - Lower limb fracture [Not Recovered/Not Resolved]
  - Tongue disorder [Not Recovered/Not Resolved]

NARRATIVE: CASE EVENT DATE: 20161013
